FAERS Safety Report 25228361 (Version 7)
Quarter: 2025Q2

REPORT INFORMATION
  Report Type: Report from Study
  Country: CA (occurrence: CA)
  Receive Date: 20250423
  Receipt Date: 20250620
  Transmission Date: 20250717
  Serious: Yes (Other)
  Sender: ALEXION PHARMACEUTICALS
  Company Number: CA-AstraZeneca-CH-00853249A

PATIENT
  Age: 83 Year

DRUGS (5)
  1. ULTOMIRIS [Suspect]
     Active Substance: RAVULIZUMAB-CWVZ
     Indication: Paroxysmal nocturnal haemoglobinuria
  2. ULTOMIRIS [Suspect]
     Active Substance: RAVULIZUMAB-CWVZ
  3. ULTOMIRIS [Suspect]
     Active Substance: RAVULIZUMAB-CWVZ
     Dosage: 3300 MILLIGRAM, Q8W
  4. VENLAFAXINE [Concomitant]
     Active Substance: VENLAFAXINE HYDROCHLORIDE
     Route: 065
  5. FOLIC ACID [Concomitant]
     Active Substance: FOLIC ACID
     Route: 065

REACTIONS (3)
  - Pneumonia [Recovered/Resolved]
  - Oral fungal infection [Recovering/Resolving]
  - Malaise [Unknown]
